FAERS Safety Report 10261082 (Version 1)
Quarter: 2014Q2

REPORT INFORMATION
  Report Type: Spontaneous
  Country: GB (occurrence: GB)
  Receive Date: 20140626
  Receipt Date: 20140626
  Transmission Date: 20141212
  Serious: Yes (Other)
  Sender: FDA-Public Use
  Company Number: GB-ASTRAZENECA-2014SE45445

PATIENT
  Sex: Female

DRUGS (2)
  1. QUETIAPINE [Suspect]
     Route: 048
  2. COPAXONE [Concomitant]

REACTIONS (2)
  - Sinus arrhythmia [Unknown]
  - Sinus tachycardia [Unknown]
